FAERS Safety Report 25271509 (Version 1)
Quarter: 2025Q2

REPORT INFORMATION
  Report Type: Spontaneous
  Country: IN (occurrence: IN)
  Receive Date: 20250506
  Receipt Date: 20250506
  Transmission Date: 20250716
  Serious: Yes (Other)
  Sender: RANBAXY
  Company Number: IN-SUN PHARMACEUTICAL INDUSTRIES LTD.-2025R1-505863

PATIENT
  Age: 36 Year
  Sex: Female

DRUGS (1)
  1. CAPECITABINE [Suspect]
     Active Substance: CAPECITABINE
     Indication: Metastases to liver
     Dosage: 1250 MILLIGRAM/SQ. METER, BID/FOR 2 WEEKS
     Route: 048

REACTIONS (2)
  - Lupus-like syndrome [Recovering/Resolving]
  - Thrombocytopenia [Unknown]
